FAERS Safety Report 8759899 (Version 2)
Quarter: 2012Q4

REPORT INFORMATION
  Report Type: Report from Study
  Country: US (occurrence: US)
  Receive Date: 20120829
  Receipt Date: 20120913
  Transmission Date: 20130627
  Serious: Yes (Hospitalization, Other)
  Sender: FDA-Public Use
  Company Number: US-TEVA-356009USA

PATIENT
  Sex: Male

DRUGS (4)
  1. METHOTREXATE [Suspect]
     Indication: RHEUMATOID ARTHRITIS
     Dates: start: 20080502
  2. ABATACEPT [Suspect]
     Indication: RHEUMATOID ARTHRITIS
     Dosage: abatacept (blinded)125mg SQ/abatacept750 mg IV
     Route: 058
     Dates: start: 20080714, end: 20081201
  3. ABATACEPT [Suspect]
     Dosage: abatacept 125mg (open phase)
     Route: 058
     Dates: start: 20081230, end: 201208
  4. PREDNISONE [Concomitant]
     Dates: start: 20080525

REACTIONS (1)
  - Non-small cell lung cancer [Unknown]
